FAERS Safety Report 4890739-6 (Version None)
Quarter: 2006Q1

REPORT INFORMATION
  Report Type: 
  Country: None (occurrence: None)
  Receive Date: 20060125
  Receipt Date: 20050107
  Transmission Date: 20060701
  Serious: Yes (Other)
  Sender: FDA-Public Use
  Company Number: US-BRISTOL-MYERS SQUIBB COMPANY-12821179

PATIENT
  Age: 47 Year
  Sex: Female

DRUGS (8)
  1. STADOL [Suspect]
     Indication: MIGRAINE
     Route: 045
     Dates: start: 19930801, end: 20001101
  2. METHYLPREDNISOLONE [Concomitant]
  3. VALIUM [Concomitant]
  4. PROMETHAZINE [Concomitant]
  5. NAPROXEN [Concomitant]
  6. DEPAKOTE [Concomitant]
  7. DARVOCET-N 50 [Concomitant]
  8. DEXAMETHASONE TAB [Concomitant]

REACTIONS (1)
  - DEPENDENCE [None]
